FAERS Safety Report 7074877-8 (Version None)
Quarter: 2010Q4

REPORT INFORMATION
  Report Type: 
  Country: None (occurrence: None)
  Receive Date: 20101029
  Receipt Date: 20101019
  Transmission Date: 20110411
  Serious: Yes (Other)
  Sender: FDA-Public Use
  Company Number: PHHY2010JP68883

PATIENT
  Age: 76 Year
  Sex: Male

DRUGS (2)
  1. ZOMETA [Suspect]
     Indication: METASTASES TO BONE
     Dosage: 32 MG, UNK
     Route: 042
  2. STEROIDS NOS [Concomitant]
     Dosage: UNK

REACTIONS (1)
  - OSTEONECROSIS OF JAW [None]
